FAERS Safety Report 26120930 (Version 1)
Quarter: 2025Q4

REPORT INFORMATION
  Report Type: Spontaneous
  Country: EU (occurrence: EU)
  Receive Date: 20251204
  Receipt Date: 20251204
  Transmission Date: 20260118
  Serious: Yes (Hospitalization, Other)
  Sender: CHEPLAPHARM
  Company Number: EU-CHEPLA-2025013617

PATIENT
  Age: 75 Year
  Sex: Female

DRUGS (5)
  1. CAPECITABINE [Suspect]
     Active Substance: CAPECITABINE
     Indication: Breast angiosarcoma
     Dosage: 6 MONTHS
  2. DOXORUBICIN [Concomitant]
     Active Substance: DOXORUBICIN
     Indication: Invasive ductal breast carcinoma
     Dosage: CUMULATIVE DOSE
  3. PACLITAXEL [Concomitant]
     Active Substance: PACLITAXEL
     Indication: Invasive ductal breast carcinoma
     Dosage: 12 DOSES OF PACLITAXEL 90 MG/M?
  4. TAMOXIFEN [Concomitant]
     Active Substance: TAMOXIFEN
     Indication: Invasive ductal breast carcinoma
     Route: 048
  5. ARIMIDEX [Concomitant]
     Active Substance: ANASTROZOLE
     Indication: Invasive ductal breast carcinoma

REACTIONS (2)
  - Cellulitis [Unknown]
  - Skin necrosis [Unknown]
